FAERS Safety Report 5702001-X (Version None)
Quarter: 2008Q2

REPORT INFORMATION
  Report Type: 
  Country: None (occurrence: None)
  Receive Date: 20080411
  Receipt Date: 20080407
  Transmission Date: 20081010
  Serious: Yes (Disabling)
  Sender: FDA-Public Use
  Company Number: CA-ASTRAZENECA-2008UW06409

PATIENT
  Age: 48 Year
  Sex: Female

DRUGS (1)
  1. LOSEC I.V. [Suspect]
     Indication: DYSPEPSIA
     Route: 048
     Dates: start: 20060101

REACTIONS (2)
  - DRUG INEFFECTIVE [None]
  - IRON DEFICIENCY [None]
